FAERS Safety Report 6781069-6 (Version None)
Quarter: 2010Q2

REPORT INFORMATION
  Report Type: 
  Country: None (occurrence: None)
  Receive Date: 20100520
  Receipt Date: 20090528
  Transmission Date: 20101027
  Serious: Yes (Other)
  Sender: FDA-Public Use
  Company Number: 2008054847

PATIENT
  Age: 51 Year
  Sex: Female
  Weight: 58 kg

DRUGS (6)
  1. PROVERA [Suspect]
     Indication: HORMONE REPLACEMENT THERAPY
     Dosage: ORAL
     Route: 048
     Dates: start: 19901001, end: 19931101
  2. MEDROXYPROGESTERONE ACETATE [Suspect]
     Indication: HORMONE REPLACEMENT THERAPY
     Dosage: ORAL
     Route: 048
     Dates: start: 19900101, end: 19931101
  3. ESTRING [Suspect]
     Indication: HORMONE REPLACEMENT THERAPY
     Route: 067
     Dates: start: 20030101, end: 20080101
  4. PREMARIN [Suspect]
     Indication: HORMONE REPLACEMENT THERAPY
     Dates: start: 19901001, end: 19931101
  5. FOSAMAX [Concomitant]
  6. PREMPRO [Suspect]
     Indication: HORMONE REPLACEMENT THERAPY
     Dates: start: 20000101, end: 20020101

REACTIONS (1)
  - BREAST CANCER FEMALE [None]
